FAERS Safety Report 12213933 (Version 1)
Quarter: 2016Q1

REPORT INFORMATION
  Report Type: Spontaneous
  Country: US (occurrence: None)
  Receive Date: 20160325
  Receipt Date: 20160325
  Transmission Date: 20160526
  Serious: Yes (Other)
  Sender: FDA-Public Use
  Company Number: None

PATIENT
  Age: 42 Year
  Sex: Female

DRUGS (1)
  1. CIMZIA [Suspect]
     Active Substance: CERTOLIZUMAB PEGOL
     Indication: RHEUMATOID ARTHRITIS
     Dosage: CIMZIA 400 MG Q 2 WEEKS SC
     Route: 058
     Dates: end: 20160303

REACTIONS (2)
  - Urticaria [None]
  - Feeling hot [None]

NARRATIVE: CASE EVENT DATE: 20160303
